FAERS Safety Report 9192900 (Version 2)
Quarter: 2013Q2

REPORT INFORMATION
  Report Type: Spontaneous
  Country: US (occurrence: None)
  Receive Date: 20120703
  Receipt Date: 20121031
  Transmission Date: 20140414
  Serious: Yes (Other)
  Sender: FDA-Public Use
  Company Number: PHEH2012US007909

PATIENT
  Age: 46 Year
  Sex: Female
  Weight: 75.7 kg

DRUGS (7)
  1. GILENYA [Suspect]
     Indication: MULTIPLE SCLEROSIS
     Route: 048
     Dates: start: 20111102, end: 20120409
  2. LEXAPRO (ESCITALOPRAM OXALATE) [Concomitant]
  3. ULTRAM (TRAMADOL HYDROCHLORIDE) [Concomitant]
  4. NEURONTIN (GABAPENTIN) [Concomitant]
  5. MULTIVITAMIN (VITAMINS NOS) [Concomitant]
  6. VITAMIN D (ERGOCALCIFEROL) [Concomitant]
  7. TYLENOL EXTRA-STRENGTH (PARACETAMOL) [Concomitant]

REACTIONS (6)
  - Red blood cell count decreased [None]
  - White blood cell count decreased [None]
  - Monocyte count increased [None]
  - Leukopenia [None]
  - Lymphocyte percentage decreased [None]
  - Lymphocyte count decreased [None]
